FAERS Safety Report 7490382-9 (Version None)
Quarter: 2011Q2

REPORT INFORMATION
  Report Type: 
  Country: None (occurrence: None)
  Receive Date: 20110519
  Receipt Date: 20110511
  Transmission Date: 20111010
  Serious: Yes (Hospitalization)
  Sender: FDA-Public Use
  Company Number: US-B.I. PHARMACEUTICALS,INC./RIDGEFIELD-2011-BP-09831BP

PATIENT
  Sex: Female
  Weight: 96.7 kg

DRUGS (12)
  1. PROGESTERONE [Concomitant]
     Indication: MENOPAUSE
     Route: 062
  2. DIGOXIN [Concomitant]
     Indication: ATRIAL FIBRILLATION
     Dosage: 0.25 MG
     Route: 048
  3. CARDIZEM CD [Concomitant]
     Indication: HYPERTENSION
     Dosage: 240 MG
     Route: 048
  4. ESTRADIOL [Concomitant]
     Indication: MENOPAUSE
     Route: 062
  5. PRADAXA [Suspect]
     Indication: ATRIAL FIBRILLATION
     Dosage: 300 MG
     Route: 048
     Dates: start: 20110112, end: 20110326
  6. PAXIL [Concomitant]
     Indication: ANXIETY
     Dosage: 40 MG
     Route: 048
  7. TEGRETOL [Concomitant]
     Dosage: 300 MG
     Route: 048
  8. BETAPACE [Concomitant]
     Dosage: 160 MG
     Dates: start: 20110318
  9. LEVOXYL [Concomitant]
     Indication: HYPOTHYROIDISM
     Dosage: 100 MCG
     Route: 048
  10. VITAMIN D [Concomitant]
     Indication: PROPHYLAXIS
     Dosage: 1000 MG
     Route: 048
  11. VITAMIN B-12 [Concomitant]
     Indication: PERNICIOUS ANAEMIA
     Route: 030
  12. DILTIAZEM [Concomitant]
     Dosage: 180 MG
     Dates: start: 20110318

REACTIONS (5)
  - PAIN IN EXTREMITY [None]
  - PULMONARY EMBOLISM [None]
  - MUSCULOSKELETAL PAIN [None]
  - DEEP VEIN THROMBOSIS [None]
  - CARDIAC ABLATION [None]
